FAERS Safety Report 8078295-5 (Version None)
Quarter: 2012Q1

REPORT INFORMATION
  Report Type: 
  Country: None (occurrence: None)
  Receive Date: 20120127
  Receipt Date: 20110217
  Transmission Date: 20120608
  Serious: No
  Sender: FDA-Public Use
  Company Number: US-ABBOTT-09P-163-0610661-00

PATIENT
  Sex: Female
  Weight: 81.72 kg

DRUGS (3)
  1. HUMIRA [Suspect]
  2. METHOTREXATE [Concomitant]
     Indication: RHEUMATOID ARTHRITIS
  3. HUMIRA [Suspect]
     Indication: RHEUMATOID ARTHRITIS
     Route: 058
     Dates: start: 20090623

REACTIONS (7)
  - DRUG DOSE OMISSION [None]
  - INJECTION SITE SWELLING [None]
  - PAIN [None]
  - SWELLING [None]
  - HEART RATE IRREGULAR [None]
  - INJECTION SITE RASH [None]
  - INJECTION SITE ERYTHEMA [None]
